FAERS Safety Report 18258926 (Version 2)
Quarter: 2020Q4

REPORT INFORMATION
  Report Type: Report from Study
  Country: US (occurrence: US)
  Receive Date: 20200911
  Receipt Date: 20201012
  Transmission Date: 20210113
  Serious: Yes (Hospitalization)
  Sender: FDA-Public Use
  Company Number: US-JNJFOC-A-NJ2020-205748

PATIENT
  Age: 54 Year
  Sex: Female
  Weight: 102.04 kg

DRUGS (5)
  1. OPSUMIT [Suspect]
     Active Substance: MACITENTAN
     Indication: PULMONARY HYPERTENSION
     Dosage: 10 MG, QD
     Route: 048
  2. OPSUMIT [Suspect]
     Active Substance: MACITENTAN
     Route: 048
  3. ADEMPAS [Concomitant]
     Active Substance: RIOCIGUAT
  4. AMLODIPINE [Concomitant]
     Active Substance: AMLODIPINE BESYLATE
  5. GABAPENTIN. [Concomitant]
     Active Substance: GABAPENTIN
     Dosage: UNK

REACTIONS (10)
  - White blood cell count increased [Unknown]
  - Motion sickness [Not Recovered/Not Resolved]
  - Condition aggravated [Unknown]
  - Atrial fibrillation [Unknown]
  - Impaired gastric emptying [Unknown]
  - Hospitalisation [Unknown]
  - Medical device implantation [Unknown]
  - Body temperature increased [Unknown]
  - Nausea [Not Recovered/Not Resolved]
  - Procedural complication [Unknown]

NARRATIVE: CASE EVENT DATE: 20200911
